FAERS Safety Report 20032628 (Version 2)
Quarter: 2022Q1

REPORT INFORMATION
  Report Type: Report from Study
  Country: BR (occurrence: BR)
  Receive Date: 20211103
  Receipt Date: 20220204
  Transmission Date: 20220423
  Serious: Yes (Hospitalization)
  Sender: FDA-Public Use
  Company Number: BR-JNJFOC-20211060289

PATIENT
  Age: 48 Year
  Sex: Male
  Weight: 75 kg

DRUGS (3)
  1. INFLIXIMAB [Suspect]
     Active Substance: INFLIXIMAB
     Indication: Crohn^s disease
     Dosage: DOSE WAS REPORTED AS 400 ML
     Route: 042
     Dates: start: 20210420, end: 202104
  2. REMICADE [Suspect]
     Active Substance: INFLIXIMAB
     Indication: Crohn^s disease
     Dosage: DOSE WAS REPORTED AS 400 ML
     Route: 042
     Dates: start: 20210420, end: 202104
  3. PFIZER-BIONTECH COVID-19 VACCINE [Suspect]
     Active Substance: TOZINAMERAN
     Route: 065
     Dates: start: 20210518

REACTIONS (1)
  - Intestinal tuberculosis [Unknown]

NARRATIVE: CASE EVENT DATE: 20210101
